FAERS Safety Report 23702116 (Version 1)
Quarter: 2024Q2

REPORT INFORMATION
  Report Type: Spontaneous
  Country: US (occurrence: None)
  Receive Date: 20240402
  Receipt Date: 20240402
  Transmission Date: 20240716
  Serious: Yes (Hospitalization)
  Sender: FDA-Public Use
  Company Number: None

PATIENT
  Sex: Female

DRUGS (11)
  1. POMALYST [Suspect]
     Active Substance: POMALIDOMIDE
     Indication: Plasma cell myeloma
     Dosage: FREQ: TAKE 1 CAPSULE BY MOUTH DAILY FOR 21 DAYS FOLLOWED BY 7 DAYS OFF?
     Route: 048
     Dates: start: 20220216
  2. ASPIRIN LOW [Concomitant]
  3. DARZALEX [Concomitant]
  4. DEXAMETH [Concomitant]
  5. ISONIAZID [Concomitant]
     Active Substance: ISONIAZID
  6. MULTIVITAMIN [Concomitant]
  7. PYRIDOXINE [Concomitant]
  8. REVLIMID [Concomitant]
     Active Substance: LENALIDOMIDE
  9. SERTRALINE [Concomitant]
     Active Substance: SERTRALINE HYDROCHLORIDE
  10. SODIUM BICAR [Concomitant]
  11. TRAMADOL [Concomitant]

REACTIONS (2)
  - Hospitalisation [None]
  - Therapy interrupted [None]
